FAERS Safety Report 21269936 (Version 1)
Quarter: 2022Q3

REPORT INFORMATION
  Report Type: Spontaneous
  Country: CH (occurrence: CH)
  Receive Date: 20220830
  Receipt Date: 20220830
  Transmission Date: 20221026
  Serious: Yes (Other)
  Sender: FDA-Public Use
  Company Number: None

PATIENT

DRUGS (11)
  1. LAMICTAL [Suspect]
     Active Substance: LAMOTRIGINE
     Indication: Depressive symptom
     Dosage: 300 MG, QD
     Route: 065
     Dates: start: 2010, end: 2015
  2. LAMICTAL [Suspect]
     Active Substance: LAMOTRIGINE
     Dosage: 200 MG, QD
     Route: 065
     Dates: start: 2015, end: 202107
  3. LAMICTAL [Suspect]
     Active Substance: LAMOTRIGINE
     Dosage: 225 MG, QD
     Route: 065
     Dates: start: 202107, end: 202204
  4. LAMICTAL [Suspect]
     Active Substance: LAMOTRIGINE
     Dosage: 200 MG, QD
     Route: 065
     Dates: start: 202204, end: 202206
  5. LAMICTAL [Suspect]
     Active Substance: LAMOTRIGINE
     Dosage: 250 MG, QD
     Route: 065
     Dates: start: 202206
  6. ARIPIPRAZOLE [Suspect]
     Active Substance: ARIPIPRAZOLE
     Indication: Depressive symptom
     Dosage: 5 MG, QD
     Route: 065
     Dates: start: 202204, end: 202206
  7. ARIPIPRAZOLE [Suspect]
     Active Substance: ARIPIPRAZOLE
     Dosage: 10 MG, QD
     Route: 065
     Dates: start: 202206
  8. LITHIUM SULFATE [Suspect]
     Active Substance: LITHIUM SULFATE
     Indication: Depressive symptom
     Dosage: 990 MG, QD (THE MORNING)
     Route: 065
     Dates: start: 2010, end: 2015
  9. LITHIUM SULFATE [Suspect]
     Active Substance: LITHIUM SULFATE
     Dosage: 660 MG, QD (THE EVENING)
     Route: 065
     Dates: start: 2010, end: 2015
  10. CIPRALEX [Concomitant]
     Active Substance: ESCITALOPRAM OXALATE
     Indication: Product used for unknown indication
     Dosage: 10 MG, QD
     Route: 065
     Dates: start: 2021
  11. METFORMIN HYDROCHLORIDE [Concomitant]
     Active Substance: METFORMIN HYDROCHLORIDE
     Indication: Product used for unknown indication
     Dosage: UNK
     Route: 065

REACTIONS (2)
  - Tremor [Not Recovered/Not Resolved]
  - Memory impairment [Not Recovered/Not Resolved]

NARRATIVE: CASE EVENT DATE: 20210101
